FAERS Safety Report 24891668 (Version 2)
Quarter: 2025Q1

REPORT INFORMATION
  Report Type: Spontaneous
  Country: JP (occurrence: JP)
  Receive Date: 20250127
  Receipt Date: 20250210
  Transmission Date: 20250409
  Serious: No
  Sender: IDORSIA PHARMACEUTICALS
  Company Number: JP-IDORSIA-009068-2025-JP

PATIENT
  Age: 84 Year
  Sex: Male

DRUGS (1)
  1. QUVIVIQ [Suspect]
     Active Substance: DARIDOREXANT
     Indication: Insomnia
     Dosage: 50 MG, QD
     Route: 048
     Dates: start: 20241228

REACTIONS (1)
  - Somnolence [Recovering/Resolving]
